FAERS Safety Report 15698222 (Version 3)
Quarter: 2019Q1

REPORT INFORMATION
  Report Type: Spontaneous
  Country: US (occurrence: US)
  Receive Date: 20181207
  Receipt Date: 20190116
  Transmission Date: 20190417
  Serious: Yes (Life-Threatening, Hospitalization, Other)
  Sender: FDA-Public Use
  Company Number: US-ABBVIE-18K-163-2577873-00

PATIENT
  Age: 76 Year
  Sex: Male
  Weight: 95.34 kg

DRUGS (1)
  1. VENCLEXTA [Suspect]
     Active Substance: VENETOCLAX
     Indication: PRODUCT USED FOR UNKNOWN INDICATION
     Route: 048
     Dates: end: 201811

REACTIONS (18)
  - Pneumonia pseudomonal [Unknown]
  - Pancytopenia [Recovering/Resolving]
  - Sepsis [Recovering/Resolving]
  - Hypotension [Unknown]
  - Oedema peripheral [Unknown]
  - Cardiomegaly [Unknown]
  - Fatigue [Unknown]
  - Asthenia [Unknown]
  - Mucosal inflammation [Not Recovered/Not Resolved]
  - Colitis [Recovered/Resolved]
  - Apparent death [Unknown]
  - Brain natriuretic peptide increased [Not Recovered/Not Resolved]
  - Stomatitis [Unknown]
  - Neutropenia [Recovered/Resolved]
  - Constipation [Not Recovered/Not Resolved]
  - Overdose [Unknown]
  - Febrile neutropenia [Recovered/Resolved]
  - Swelling [Not Recovered/Not Resolved]

NARRATIVE: CASE EVENT DATE: 201811
